FAERS Safety Report 8439688-7 (Version None)
Quarter: 2012Q2

REPORT INFORMATION
  Report Type: 
  Country: None (occurrence: None)
  Receive Date: 20120615
  Receipt Date: 20120611
  Transmission Date: 20120825
  Serious: No
  Sender: FDA-Public Use
  Company Number: US-PFIZER INC-2012130995

PATIENT
  Sex: Female

DRUGS (5)
  1. LORTAB [Concomitant]
     Dosage: UNK
  2. LYRICA [Suspect]
     Dosage: 75 MG, 2X/DAY
  3. SOMA [Concomitant]
     Dosage: UNK
  4. BENADRYL [Concomitant]
     Dosage: UNK
  5. LYRICA [Suspect]
     Dosage: 50 MG, 2X/DAY
     Dates: start: 20111001

REACTIONS (1)
  - DIZZINESS [None]
